FAERS Safety Report 5221889-2 (Version None)
Quarter: 2007Q1

REPORT INFORMATION
  Report Type: 
  Country: None (occurrence: None)
  Receive Date: 20070126
  Receipt Date: 20070126
  Transmission Date: 20070707
  Serious: No
  Sender: FDA-Public Use
  Company Number: None

PATIENT
  Age: 48 Year
  Sex: Female
  Weight: 44.4525 kg

DRUGS (2)
  1. PRILOSEC [Suspect]
     Indication: GASTROOESOPHAGEAL REFLUX DISEASE
     Dosage: 1 PILL  ONCE A DAY   PO
     Route: 048
     Dates: start: 20060801, end: 20061231
  2. PRILOSEC [Suspect]
     Indication: GASTROOESOPHAGEAL REFLUX DISEASE
     Dosage: 1 PILL  ONCE A DAY   PO
     Route: 048
     Dates: end: 20070124

REACTIONS (3)
  - DIZZINESS [None]
  - HEADACHE [None]
  - HEART RATE INCREASED [None]
